FAERS Safety Report 11044300 (Version 1)
Quarter: 2015Q2

REPORT INFORMATION
  Report Type: Report from Study
  Country: AU (occurrence: AU)
  Receive Date: 20150417
  Receipt Date: 20150417
  Transmission Date: 20150821
  Serious: Yes (Hospitalization)
  Sender: FDA-Public Use
  Company Number: AU-AMGEN-AUSCT2015037004

PATIENT
  Age: 60 Year
  Sex: Male

DRUGS (15)
  1. CYTARABINE. [Suspect]
     Active Substance: CYTARABINE
     Indication: B-CELL LYMPHOMA
     Dosage: 100 MG, 2 IN 1 D
     Route: 042
     Dates: start: 20020228, end: 20020228
  2. CYCLOPHOSPHAMIDE. [Suspect]
     Active Substance: CYCLOPHOSPHAMIDE
     Indication: B-CELL LYMPHOMA
     Dosage: 2850 UNK, 2 IN 1 D
     Route: 042
     Dates: start: 20020124
  3. ETOPOSIDE. [Suspect]
     Active Substance: ETOPOSIDE
     Indication: B-CELL LYMPHOMA
     Dosage: 320 MG, UNK
     Route: 042
     Dates: start: 20020228, end: 20020303
  4. METHOTREXATE [Concomitant]
     Active Substance: METHOTREXATE
     Dosage: 12 MG, STAT
  5. ENOXAPARIN [Concomitant]
     Active Substance: ENOXAPARIN
     Dosage: 40 MG, UNK
     Route: 058
     Dates: start: 20020228, end: 20020309
  6. FILGRASTIM [Suspect]
     Active Substance: FILGRASTIM
     Indication: B-CELL LYMPHOMA
     Dosage: 600 MG, UNK
     Route: 058
     Dates: start: 20020125, end: 20020206
  7. CYTARABINE. [Suspect]
     Active Substance: CYTARABINE
     Dosage: 320 MG, 1 IN 2 D
     Route: 042
     Dates: start: 20020301, end: 20020303
  8. ALLOPURINOL. [Concomitant]
     Active Substance: ALLOPURINOL
     Dosage: 300 MG, UNK
     Dates: start: 20020124, end: 20020126
  9. CARMUSTINE [Suspect]
     Active Substance: CARMUSTINE
     Indication: B-CELL LYMPHOMA
     Dosage: 480 MG, UNK
     Route: 042
     Dates: start: 20020227
  10. FLUCONAZOLE. [Concomitant]
     Active Substance: FLUCONAZOLE
     Dosage: 200 MG, UNK
     Route: 048
     Dates: start: 20020227
  11. LENOGRASTIM [Concomitant]
     Active Substance: LENOGRASTIM
     Dosage: 263 MG, UNK
     Route: 058
     Dates: start: 20020307
  12. AUGMENTIN DUO [Concomitant]
     Active Substance: AMOXICILLIN\CLAVULANATE POTASSIUM
     Dosage: UNK (1 IN 2 D)
     Route: 065
     Dates: start: 20020126, end: 20020203
  13. VALACYCLOVIR [Concomitant]
     Active Substance: VALACYCLOVIR HYDROCHLORIDE
     Dosage: 500 MG, 1 IN 2 D
     Route: 048
     Dates: start: 20020305
  14. MELPHALAN [Suspect]
     Active Substance: MELPHALAN
     Indication: B-CELL LYMPHOMA
     Dosage: 224 MG, STAT
     Route: 042
     Dates: start: 20020304, end: 20020304
  15. MESNA. [Concomitant]
     Active Substance: MESNA
     Dosage: 2752 MG, 15 MINUTES PRIOR
     Route: 042
     Dates: start: 20020124, end: 20020125

REACTIONS (1)
  - Febrile neutropenia [Recovered/Resolved]

NARRATIVE: CASE EVENT DATE: 20020203
